FAERS Safety Report 6018853-2 (Version None)
Quarter: 2008Q4

REPORT INFORMATION
  Report Type: 
  Country: None (occurrence: None)
  Receive Date: 20081222
  Receipt Date: 20081222
  Transmission Date: 20090506
  Serious: No
  Sender: FDA-Public Use
  Company Number: None

PATIENT
  Age: 32 Year
  Sex: Female
  Weight: 73.9363 kg

DRUGS (1)
  1. NAPROXEN [Suspect]
     Indication: CHEST PAIN
     Dosage: 1 TABLET TWICE DAILY W/FD
     Dates: start: 20081219, end: 20081220

REACTIONS (1)
  - TREMOR [None]
